FAERS Safety Report 19909675 (Version 1)
Quarter: 2021Q4

REPORT INFORMATION
  Report Type: Spontaneous
  Country: TN (occurrence: TN)
  Receive Date: 20211002
  Receipt Date: 20211002
  Transmission Date: 20220304
  Serious: Yes (Life-Threatening, Hospitalization)
  Sender: FDA-Public Use
  Company Number: TN-LUPIN PHARMACEUTICALS INC.-2021-18608

PATIENT
  Age: 50 Year
  Sex: Male

DRUGS (4)
  1. ALBUTEROL SULFATE [Suspect]
     Active Substance: ALBUTEROL SULFATE
     Indication: Asthma
     Dosage: 400 MICROGRAM
  2. TERBUTALINE [Suspect]
     Active Substance: TERBUTALINE
     Indication: Asthma
     Dosage: UNK (STANDARD DOSE; NEBULISER)
  3. TERBUTALINE [Suspect]
     Active Substance: TERBUTALINE
     Dosage: 5 MILLILITER (NEBULISATION OF A STANDARD DOSE OF TERBUTALINE MADE UP TO A TOTAL VOLUME OF 5 ML WITH
  4. SALINE [Concomitant]
     Active Substance: SODIUM CHLORIDE
     Indication: Vehicle solution use
     Dosage: UNK (NEBULISATION OF A STANDARD DOSE OF TERBUTALINE MADE UP TO A TOTAL VOLUME OF 5 ML WITH 0.9% SALI
     Route: 065

REACTIONS (1)
  - Bronchospasm paradoxical [Not Recovered/Not Resolved]
